FAERS Safety Report 6045500-6 (Version None)
Quarter: 2009Q1

REPORT INFORMATION
  Report Type: 
  Country: None (occurrence: None)
  Receive Date: 20090121
  Receipt Date: 20090115
  Transmission Date: 20090719
  Serious: Yes (Hospitalization)
  Sender: FDA-Public Use
  Company Number: A0763646A

PATIENT
  Age: 54 Year
  Sex: Female
  Weight: 56.3 kg

DRUGS (3)
  1. LAPATINIB [Suspect]
     Dosage: 1500MG PER DAY
     Route: 048
  2. CISPLATIN [Suspect]
  3. RADIOTHERAPY [Suspect]

REACTIONS (1)
  - BLOOD CREATININE INCREASED [None]
